FAERS Safety Report 11741756 (Version 1)
Quarter: 2015Q4

REPORT INFORMATION
  Report Type: Spontaneous
  Country: IT (occurrence: IT)
  Receive Date: 20151116
  Receipt Date: 20151116
  Transmission Date: 20160304
  Serious: Yes (Hospitalization, Other)
  Sender: FDA-Public Use
  Company Number: IT-WATSON-2015-18971

PATIENT
  Age: 52 Year
  Sex: Male

DRUGS (5)
  1. DEXAMETHASONE (UNKNOWN) [Suspect]
     Active Substance: DEXAMETHASONE
     Dosage: 16 MG, DAILY
     Route: 065
  2. DEXAMETHASONE (UNKNOWN) [Suspect]
     Active Substance: DEXAMETHASONE
     Dosage: 8 MG, DAILY FOR BOTH CYCLES
     Route: 065
  3. TEMOZOLOMIDE (UNKNOWN) [Suspect]
     Active Substance: TEMOZOLOMIDE
     Dosage: 150 MG/M2, CYCLICAL, 5 DAYS/28 DAYS
     Route: 048
  4. TEMOZOLOMIDE (UNKNOWN) [Suspect]
     Active Substance: TEMOZOLOMIDE
     Dosage: 300 MG/M2, CYCLICAL, 5 DAYS/28 DAYS
     Route: 048
  5. TEMOZOLOMIDE (UNKNOWN) [Suspect]
     Active Substance: TEMOZOLOMIDE
     Indication: ANAPLASTIC ASTROCYTOMA
     Dosage: 75 MG/M2, UNKNOWN
     Route: 048

REACTIONS (1)
  - Hepatitis B [Recovered/Resolved]
